FAERS Safety Report 19458643 (Version 6)
Quarter: 2022Q2

REPORT INFORMATION
  Report Type: Spontaneous
  Country: US (occurrence: US)
  Receive Date: 20210624
  Receipt Date: 20220405
  Transmission Date: 20220721
  Serious: No
  Sender: FDA-Public Use
  Company Number: US-PFIZER INC-2021260143

PATIENT
  Age: 59 Year
  Sex: Female

DRUGS (1)
  1. IBRANCE [Suspect]
     Active Substance: PALBOCICLIB
     Indication: Ovarian cancer recurrent
     Dosage: 125 MG

REACTIONS (9)
  - Off label use [Unknown]
  - Product dose omission issue [Unknown]
  - Neoplasm progression [Unknown]
  - Constipation [Not Recovered/Not Resolved]
  - Rotator cuff syndrome [Unknown]
  - Decreased appetite [Unknown]
  - Nausea [Unknown]
  - Depression [Unknown]
  - Pain in extremity [Unknown]
